FAERS Safety Report 6876830-3 (Version None)
Quarter: 2010Q3

REPORT INFORMATION
  Report Type: 
  Country: None (occurrence: None)
  Receive Date: 20100727
  Receipt Date: 20100719
  Transmission Date: 20110219
  Serious: Yes (Hospitalization)
  Sender: FDA-Public Use
  Company Number: TN-ROCHE-716258

PATIENT
  Age: 65 Year
  Sex: Female
  Weight: 68 kg

DRUGS (2)
  1. PEGASYS [Suspect]
     Dosage: DOSE REPORTED AS: 180 MICROG/WK
     Route: 058
     Dates: start: 20100617, end: 20100702
  2. COPEGUS [Suspect]
     Dosage: FREQUENCY: DAILY, STOP DATE REPORTED AS NC
     Route: 048
     Dates: start: 20100617

REACTIONS (1)
  - HEPATIC ENCEPHALOPATHY [None]
